FAERS Safety Report 7206450-2 (Version None)
Quarter: 2010Q4

REPORT INFORMATION
  Report Type: 
  Country: None (occurrence: None)
  Receive Date: 20101229
  Receipt Date: 20101229
  Transmission Date: 20110411
  Serious: Yes (Other)
  Sender: FDA-Public Use
  Company Number: None

PATIENT
  Age: 79 Year
  Sex: Female
  Weight: 67.1324 kg

DRUGS (2)
  1. LEVAQUIN [Suspect]
     Indication: BRONCHITIS
     Dosage: 500 MG BID PO
     Route: 048
     Dates: start: 20101202, end: 20101204
  2. LEVAQUIN [Suspect]
     Indication: SINUSITIS
     Dosage: 500 MG BID PO
     Route: 048
     Dates: start: 20101202, end: 20101204

REACTIONS (9)
  - ARTHRALGIA [None]
  - INSOMNIA [None]
  - INTERVERTEBRAL DISC PROTRUSION [None]
  - NERVE COMPRESSION [None]
  - NUCLEAR MAGNETIC RESONANCE IMAGING ABNORMAL [None]
  - PAIN IN EXTREMITY [None]
  - TENDON DISORDER [None]
  - TENDON PAIN [None]
  - TENDON RUPTURE [None]
